FAERS Safety Report 7215666-0 (Version None)
Quarter: 2011Q1

REPORT INFORMATION
  Report Type: 
  Country: None (occurrence: None)
  Receive Date: 20110107
  Receipt Date: 20101228
  Transmission Date: 20110831
  Serious: Yes (Hospitalization, Other)
  Sender: FDA-Public Use
  Company Number: US-JNJFOC-20110100335

PATIENT
  Sex: Female

DRUGS (6)
  1. NORETHISTERONE [Suspect]
     Indication: DYSMENORRHOEA
     Route: 065
  2. MYCOPHENOLATE MOFETIL [Suspect]
     Indication: LUPUS NEPHRITIS
     Route: 065
  3. PREDNISONE [Suspect]
     Indication: LUPUS NEPHRITIS
     Dosage: EVERY OTHER DAY
     Route: 065
  4. PREDNISONE [Suspect]
     Route: 065
  5. ENALAPRIL [Suspect]
     Indication: PRODUCT USED FOR UNKNOWN INDICATION
     Route: 065
  6. ERGOCALCIFEROL [Suspect]
     Indication: PRODUCT USED FOR UNKNOWN INDICATION
     Route: 065

REACTIONS (6)
  - MENTAL STATUS CHANGES [None]
  - LUPUS NEPHRITIS [None]
  - OFF LABEL USE [None]
  - SOMNOLENCE [None]
  - AGITATION [None]
  - STUPOR [None]
